FAERS Safety Report 15098193 (Version 2)
Quarter: 2018Q3

REPORT INFORMATION
  Report Type: Spontaneous
  Country: US (occurrence: US)
  Receive Date: 20180702
  Receipt Date: 20180920
  Transmission Date: 20181010
  Serious: No
  Sender: FDA-Public Use
  Company Number: US-IGSA-SR10006412

PATIENT
  Age: 48 Year
  Sex: Female
  Weight: 88 kg

DRUGS (8)
  1. CLONAZEPAM. [Concomitant]
     Active Substance: CLONAZEPAM
  2. GAMUNEX?C [Suspect]
     Active Substance: HUMAN IMMUNOGLOBULIN G
     Dosage: 176 MG, Q.6WK.
     Dates: start: 20171101
  3. GAMUNEX?C [Suspect]
     Active Substance: HUMAN IMMUNOGLOBULIN G
     Indication: CHRONIC INFLAMMATORY DEMYELINATING POLYRADICULONEUROPATHY
     Dosage: 176 G, Q.6WK.
     Dates: start: 201702
  4. GAMUNEX?C [Suspect]
     Active Substance: HUMAN IMMUNOGLOBULIN G
     Dosage: UNK
  5. FLEXERIL [Concomitant]
     Active Substance: CYCLOBENZAPRINE HYDROCHLORIDE
  6. GAMUNEX?C [Suspect]
     Active Substance: HUMAN IMMUNOGLOBULIN G
     Dosage: UNK, Q.4WK.
     Route: 042
     Dates: start: 20161001, end: 20171102
  7. GAMUNEX?C [Suspect]
     Active Substance: HUMAN IMMUNOGLOBULIN G
     Dosage: UNK
  8. BUPROPION. [Concomitant]
     Active Substance: BUPROPION

REACTIONS (11)
  - Swelling [Recovering/Resolving]
  - Fatigue [Recovered/Resolved]
  - Skin atrophy [Recovering/Resolving]
  - Rash macular [Recovering/Resolving]
  - Alopecia [Recovering/Resolving]
  - Neuralgia [Recovering/Resolving]
  - Malaise [Recovered/Resolved]
  - Vein disorder [Recovering/Resolving]
  - Migraine [Recovering/Resolving]
  - Lymphadenopathy [Recovering/Resolving]
  - Skin disorder [Recovering/Resolving]

NARRATIVE: CASE EVENT DATE: 201610
